FAERS Safety Report 8979429 (Version 2)
Quarter: 2013Q2

REPORT INFORMATION
  Report Type: Report from Study
  Country: FR (occurrence: FR)
  Receive Date: 20121221
  Receipt Date: 20130524
  Transmission Date: 20140414
  Serious: Yes (Hospitalization)
  Sender: FDA-Public Use
  Company Number: FR-NAPPMUNDI-DEU-2012-0010113

PATIENT
  Age: 84 Year
  Sex: Male
  Weight: 61 kg

DRUGS (29)
  1. OXYCODONE HYDROCHLORIDE [Suspect]
     Indication: PAIN
     Dosage: UNK UNK, PRN
     Route: 048
     Dates: start: 20120507, end: 20120624
  2. DARBEPOETIN ALFA [Suspect]
     Indication: NEPHROGENIC ANAEMIA
     Dosage: 20 MCG, UNK
     Route: 042
     Dates: start: 20110921
  3. AMIODARONE [Concomitant]
     Indication: PRODUCT USED FOR UNKNOWN INDICATION
     Dosage: 1 DF, DAILY
     Dates: start: 20090929
  4. AMIODARONE [Concomitant]
     Dosage: 1 DF, UNK
     Dates: start: 20080105
  5. HYDROXYZINE [Concomitant]
     Dosage: 25 MG, UNK
     Dates: start: 20111107, end: 20120612
  6. CALCIUM CARBONATE [Concomitant]
     Dosage: 1 G, DAILY
     Dates: start: 20120222
  7. CALCIUM CARBONATE [Concomitant]
     Dosage: 1 UNK, DAILY
     Dates: start: 20110527, end: 20120604
  8. BISOPROLOL [Concomitant]
     Dosage: 2.5 MG, UNK
     Dates: start: 20100706
  9. BISOPROLOL [Concomitant]
     Dosage: 2.5 MG, UNK
     Dates: start: 20090812
  10. BISOPROLOL [Concomitant]
     Dosage: UNK
     Dates: start: 20120502
  11. ROSUVASTATIN [Concomitant]
     Dosage: 20 MG, UNK
     Dates: start: 20081007
  12. CALCIFEDIOL [Concomitant]
     Dosage: 10 UNK, WEEKLY
     Dates: start: 20090708
  13. CALCIFEDIOL [Concomitant]
     Dosage: 10 UNK, WEEKLY
     Dates: start: 20080403
  14. LIDOCAINE [Concomitant]
     Dosage: UNK, PRN
     Dates: start: 20090708
  15. TRINITRINE [Concomitant]
     Dosage: UNK PATCH, UNK
     Dates: start: 20090929
  16. PANTOPRAZOLE [Concomitant]
     Dosage: 20 MG, UNK
     Dates: start: 20090724
  17. FUROSEMIDE [Concomitant]
     Dosage: 500 MG, UNK
     Dates: start: 20101011
  18. FUROSEMIDE [Concomitant]
     Dosage: 500 MG, UNK
     Dates: start: 20080122
  19. PREGABALIN [Concomitant]
     Dosage: 75 MG, UNK
     Dates: start: 20110706
  20. PARACETAMOL [Concomitant]
     Dosage: UNK, PRN
     Dates: start: 20120507
  21. PARACETAMOL [Concomitant]
     Dosage: UNK, PRN
     Dates: start: 20110326
  22. CLOPIDOGREL [Concomitant]
     Dosage: 1 DF, UNK
     Dates: start: 20091218
  23. ZOLPIDEM [Concomitant]
     Dosage: 1 DF, UNK
     Dates: start: 20100303
  24. DICLOFENAC [Concomitant]
     Dosage: UNK, PRN
     Dates: start: 20120615
  25. KETOPROFEN [Concomitant]
     Dosage: 100 MG, UNK
     Dates: start: 20110314, end: 20120412
  26. CLONAZEPAM [Concomitant]
     Dosage: 10 MG, UNK
     Dates: start: 20100303, end: 20120604
  27. CALCIUM ACETATE [Concomitant]
     Dosage: 1 DF, UNK
     Dates: start: 20120528
  28. LEVOTHYROXINE SODIUM [Concomitant]
     Dosage: 25 MCG, UNK
     Dates: start: 20120127, end: 20120621
  29. LEVOTHYROXINE SODIUM [Concomitant]
     Dosage: 50 MCG, UNK
     Dates: start: 20120622

REACTIONS (1)
  - Confusional state [Recovered/Resolved]
